FAERS Safety Report 14598475 (Version 1)
Quarter: 2018Q1

REPORT INFORMATION
  Report Type: Spontaneous
  Country: JP (occurrence: JP)
  Receive Date: 20180305
  Receipt Date: 20180305
  Transmission Date: 20180509
  Serious: Yes (Other)
  Sender: FDA-Public Use
  Company Number: JP-BAYER-2017-215458

PATIENT
  Sex: Male

DRUGS (9)
  1. LANSOPRAZOLE. [Concomitant]
     Active Substance: LANSOPRAZOLE
  2. BARACLUDE [Concomitant]
     Active Substance: ENTECAVIR
     Dosage: UNK
  3. SPIRONOLACTONE. [Concomitant]
     Active Substance: SPIRONOLACTONE
  4. AMINOVACT [Concomitant]
  5. NEO-MINOPHAGEN C [Concomitant]
     Active Substance: AMMONIUM GLYCYRRHIZATE
  6. NEXAVAR [Suspect]
     Active Substance: SORAFENIB
     Indication: HEPATOCELLULAR CARCINOMA
     Dosage: DAILY DOSE 400MG
     Route: 048
     Dates: start: 20171103, end: 20171116
  7. LOXOPROFEN [Concomitant]
     Active Substance: LOXOPROFEN
  8. BIO-THREE [Concomitant]
     Active Substance: HERBALS
  9. URSO [Concomitant]
     Active Substance: URSODIOL

REACTIONS (2)
  - Pollakiuria [Recovered/Resolved]
  - Hepatocellular carcinoma [None]

NARRATIVE: CASE EVENT DATE: 20171106
